FAERS Safety Report 24238082 (Version 2)
Quarter: 2024Q3

REPORT INFORMATION
  Report Type: Spontaneous
  Country: US (occurrence: US)
  Receive Date: 20240822
  Receipt Date: 20240902
  Transmission Date: 20241017
  Serious: No
  Sender: ABBVIE
  Company Number: US-ABBVIE-5881428

PATIENT
  Sex: Male

DRUGS (2)
  1. LUPRON DEPOT-PED [Suspect]
     Active Substance: LEUPROLIDE ACETATE
     Indication: Precocious puberty
     Route: 030
     Dates: end: 2002
  2. LUPRON DEPOT-PED [Suspect]
     Active Substance: LEUPROLIDE ACETATE
     Indication: Precocious puberty
     Route: 030
     Dates: start: 202401, end: 202406

REACTIONS (3)
  - Gait disturbance [Unknown]
  - Swelling [Unknown]
  - Pain [Unknown]
